FAERS Safety Report 22192249 (Version 3)
Quarter: 2023Q2

REPORT INFORMATION
  Report Type: Spontaneous
  Country: CA (occurrence: CA)
  Receive Date: 20230410
  Receipt Date: 20230630
  Transmission Date: 20230722
  Serious: Yes (Other)
  Sender: FDA-Public Use
  Company Number: CA-CELLTRION INC.-2023CA007063

PATIENT

DRUGS (7)
  1. INFLECTRA [Suspect]
     Active Substance: INFLIXIMAB-DYYB
     Indication: Colitis ulcerative
     Dosage: 350 MG,W0, W2, W6 AND THEN EVERY 8 WEEKS
     Route: 042
     Dates: start: 20230316
  2. INFLECTRA [Suspect]
     Active Substance: INFLIXIMAB-DYYB
     Dosage: 350 MG WEEK 2 (W0, W2, W6 AND THEN EVERY 8 WEEKS)
     Route: 042
     Dates: start: 20230329
  3. INFLECTRA [Suspect]
     Active Substance: INFLIXIMAB-DYYB
     Dosage: 350 MG WEEK 6 (W0, W2, W6 AND THEN EVERY 8 WEEKS)
     Route: 042
     Dates: start: 20230426
  4. INFLECTRA [Suspect]
     Active Substance: INFLIXIMAB-DYYB
     Dosage: 350 MG, W0, W2, W6 AND THEN EVERY 8 WEEKS
     Route: 042
     Dates: start: 20230621
  5. BENADRYL [Suspect]
     Active Substance: DIPHENHYDRAMINE HYDROCHLORIDE
     Dosage: UNK
  6. AZATHIOPRINE [Concomitant]
     Active Substance: AZATHIOPRINE
     Dosage: 1 DF
     Dates: start: 2021
  7. MESALAMINE [Concomitant]
     Active Substance: MESALAMINE
     Dosage: 1 DF
     Dates: start: 2020

REACTIONS (2)
  - Condition aggravated [Recovering/Resolving]
  - Paraesthesia [Recovered/Resolved]

NARRATIVE: CASE EVENT DATE: 20230301
